FAERS Safety Report 6871862-3 (Version None)
Quarter: 2010Q3

REPORT INFORMATION
  Report Type: 
  Country: None (occurrence: None)
  Receive Date: 20100723
  Receipt Date: 20100713
  Transmission Date: 20110219
  Serious: Yes (Other)
  Sender: FDA-Public Use
  Company Number: US-PFIZER INC-2010088436

PATIENT
  Sex: Male
  Weight: 108.84 kg

DRUGS (3)
  1. LIPITOR [Suspect]
     Indication: BLOOD CHOLESTEROL INCREASED
     Dosage: 20 MG, 1X/DAY
     Dates: start: 20000101, end: 20100324
  2. PROSCAR [Concomitant]
     Indication: PROSTATOMEGALY
     Dosage: UNK
  3. FLOMAX [Concomitant]
     Indication: PROSTATOMEGALY
     Dosage: UNK

REACTIONS (6)
  - INFLAMMATION [None]
  - MUSCLE ATROPHY [None]
  - MUSCLE DISORDER [None]
  - MUSCULAR WEAKNESS [None]
  - PARAESTHESIA [None]
  - PERIPHERAL COLDNESS [None]
